FAERS Safety Report 5008954-X (Version None)
Quarter: 2006Q2

REPORT INFORMATION
  Report Type: 
  Country: None (occurrence: None)
  Receive Date: 20060519
  Receipt Date: 20060504
  Transmission Date: 20061013
  Serious: Yes (Hospitalization)
  Sender: FDA-Public Use
  Company Number: 2006S1003992

PATIENT
  Age: 72 Year
  Sex: Female
  Weight: 73.0291 kg

DRUGS (6)
  1. METOPROLOL TARTRATE [Suspect]
     Indication: TACHYCARDIA
     Dosage: 50 MG; BID; ORAL
     Route: 048
     Dates: start: 20060406
  2. OXYGEN [Concomitant]
  3. IPRATROPIUM BROMIDE/ SALBUTAMOL SULFATE [Concomitant]
  4. FUROSEMIDE [Concomitant]
  5. LISINOPRIL [Concomitant]
  6. ACETYLSALICYLIC ACID SRT [Concomitant]

REACTIONS (2)
  - CONDITION AGGRAVATED [None]
  - DYSPNOEA [None]
